FAERS Safety Report 4477228-8 (Version None)
Quarter: 2004Q4

REPORT INFORMATION
  Report Type: 
  Country: None (occurrence: None)
  Receive Date: 20041013
  Receipt Date: 20040930
  Transmission Date: 20050328
  Serious: No
  Sender: FDA-Public Use
  Company Number: A01200404863

PATIENT
  Age: 72 Year
  Sex: Male

DRUGS (3)
  1. PLAVIX [Suspect]
     Dosage: ORAL
     Route: 048
     Dates: start: 19991214
  2. LIPITOR [Suspect]
     Indication: METABOLIC DISORDER
     Dosage: 20 MG
     Dates: start: 19980213
  3. LOSEC - (OMEPRAZOLE) [Suspect]
     Indication: OESOPHAGEAL DISORDER
     Dates: start: 19980604

REACTIONS (1)
  - ACUTE MYELOMONOCYTIC LEUKAEMIA [None]
